FAERS Safety Report 5755803-8 (Version None)
Quarter: 2008Q2

REPORT INFORMATION
  Report Type: 
  Country: None (occurrence: None)
  Receive Date: 20080528
  Receipt Date: 20080520
  Transmission Date: 20081010
  Serious: Yes (Other)
  Sender: FDA-Public Use
  Company Number: 2008SP008464

PATIENT
  Age: 14 Year
  Sex: Female
  Weight: 47.6277 kg

DRUGS (3)
  1. CLARITIN [Suspect]
     Indication: COUGH
     Dosage: 1 DF;ONCE;PO
     Route: 048
     Dates: start: 20080503, end: 20080503
  2. CLARITIN [Suspect]
     Indication: NASAL CONGESTION
     Dosage: 1 DF;ONCE;PO
     Route: 048
     Dates: start: 20080503, end: 20080503
  3. CLARITIN [Suspect]
     Indication: POSTNASAL DRIP
     Dosage: 1 DF;ONCE;PO
     Route: 048
     Dates: start: 20080503, end: 20080503

REACTIONS (4)
  - DRUG INEFFECTIVE [None]
  - PRESYNCOPE [None]
  - VISION BLURRED [None]
  - VISUAL DISTURBANCE [None]
